FAERS Safety Report 4950054-9 (Version None)
Quarter: 2006Q1

REPORT INFORMATION
  Report Type: 
  Country: None (occurrence: None)
  Receive Date: 20060320
  Receipt Date: 20060320
  Transmission Date: 20060701
  Serious: No
  Sender: FDA-Public Use
  Company Number: None

PATIENT
  Age: 52 Year
  Sex: Male
  Weight: 89.3586 kg

DRUGS (1)
  1. ISOVUE-300 [Suspect]
     Dates: start: 20051216, end: 20051216

REACTIONS (1)
  - URTICARIA [None]
